FAERS Safety Report 7145305-9 (Version None)
Quarter: 2010Q4

REPORT INFORMATION
  Report Type: 
  Country: None (occurrence: None)
  Receive Date: 20101123
  Receipt Date: 20101109
  Transmission Date: 20110411
  Serious: Yes (Other)
  Sender: FDA-Public Use
  Company Number: 1000014945

PATIENT
  Sex: Female

DRUGS (3)
  1. ESCITALOPRAM [Suspect]
     Indication: MAJOR DEPRESSION
     Dosage: 25 MG (25 MG,1 IN 1 D),ORAL
     Route: 048
  2. ESCITALOPRAM [Suspect]
     Indication: MAJOR DEPRESSION
     Dosage: 10 MG (10 MG,1 IN 1 D),ORAL
     Route: 048
  3. TAVOR (LORAZEPAM) (LORAZEPAM) [Concomitant]

REACTIONS (2)
  - METRORRHAGIA [None]
  - OVERDOSE [None]
